FAERS Safety Report 15677240 (Version 2)
Quarter: 2021Q3

REPORT INFORMATION
  Report Type: Spontaneous
  Country: US (occurrence: US)
  Receive Date: 20181130
  Receipt Date: 20210908
  Transmission Date: 20211014
  Serious: Yes (Disabling)
  Sender: FDA-Public Use
  Company Number: US-TEVA-2018-US-980446

PATIENT
  Age: 48 Year
  Sex: Female
  Weight: 63 kg

DRUGS (9)
  1. DOCETAXEL AVENTIS [Suspect]
     Active Substance: DOCETAXEL
     Indication: BREAST CANCER FEMALE
     Dosage: 6 CYCLES WITH FREQUENCY EVERY 3 WEEKS
     Route: 065
     Dates: start: 20140121, end: 20140507
  2. CARVEDILOL. [Concomitant]
     Active Substance: CARVEDILOL
     Route: 065
  3. DOCETAXEL HOSPIRA [Suspect]
     Active Substance: DOCETAXEL
     Indication: BREAST CANCER FEMALE
     Dosage: 6 CYCLES WITH FREQUENCY EVERY 3 WEEKS
     Route: 065
     Dates: start: 20140121, end: 20140507
  4. TRAZODONE [Concomitant]
     Active Substance: TRAZODONE HYDROCHLORIDE
     Route: 065
  5. DOCETAXEL SAGENT [Suspect]
     Active Substance: DOCETAXEL
     Indication: BREAST CANCER FEMALE
     Dosage: 6 CYCLES WITH FREQUENCY EVERY 3 WEEKS
     Route: 065
     Dates: start: 20140121, end: 20140507
  6. PARAPLATIN [Concomitant]
     Active Substance: CARBOPLATIN
     Indication: BREAST CANCER FEMALE
     Dosage: 6 CYCLES WITH FREQUENCY EVERY 3 WEEKS
     Route: 065
     Dates: start: 20140121, end: 20140507
  7. HERCEPTIN [Concomitant]
     Active Substance: TRASTUZUMAB
     Indication: BREAST CANCER FEMALE
     Dosage: 6 CYCLES WITH FREQUENCY EVERY 3 WEEKS
     Route: 065
     Dates: start: 20140121, end: 20140507
  8. FOSINOPRIL [Concomitant]
     Active Substance: FOSINOPRIL
     Route: 065
  9. ANASTROZOLE. [Concomitant]
     Active Substance: ANASTROZOLE
     Route: 065

REACTIONS (2)
  - Madarosis [Not Recovered/Not Resolved]
  - Alopecia areata [Not Recovered/Not Resolved]

NARRATIVE: CASE EVENT DATE: 20140121
